FAERS Safety Report 7404919-9 (Version None)
Quarter: 2011Q2

REPORT INFORMATION
  Report Type: 
  Country: None (occurrence: None)
  Receive Date: 20110411
  Receipt Date: 20101021
  Transmission Date: 20111010
  Serious: Yes (Other)
  Sender: FDA-Public Use
  Company Number: US-BAYER-201032565NA

PATIENT
  Age: 22 Year
  Sex: Female
  Weight: 61 kg

DRUGS (20)
  1. HYOSCYAMINE [Concomitant]
  2. AAP/CODEINE [Concomitant]
  3. YASMIN [Suspect]
     Indication: OVARIAN CYST
  4. OCELLA [Suspect]
     Indication: PREMENSTRUAL SYNDROME
  5. PANLOR SS [Concomitant]
  6. MOTRIN [Concomitant]
     Indication: PAIN
     Dosage: UNK UNK, PRN
  7. YAZ [Suspect]
     Indication: MENSTRUAL CYCLE MANAGEMENT
     Route: 048
     Dates: start: 20070701, end: 20080401
  8. YASMIN [Suspect]
     Indication: PREMENSTRUAL SYNDROME
  9. YASMIN [Suspect]
     Indication: CONTRACEPTION
  10. YAZ [Suspect]
  11. COLYTE [Concomitant]
  12. ADVIL LIQUI-GELS [Concomitant]
     Indication: PAIN
     Dosage: UNK UNK, PRN
  13. ANTIBIOTICS [Concomitant]
     Dosage: UNK
     Dates: start: 20000101, end: 20100101
  14. YASMIN [Suspect]
     Indication: MENSTRUAL CYCLE MANAGEMENT
     Dosage: UNK UNK, UNK
     Route: 048
     Dates: start: 20060101, end: 20080101
  15. OCELLA [Suspect]
     Indication: CONTRACEPTION
  16. SULFAMETHOXAZOLE AND TRIMETHOPRIM DOUBLE STRENGTH [Concomitant]
  17. OCELLA [Suspect]
     Indication: MENSTRUAL CYCLE MANAGEMENT
     Dosage: UNK UNK, UNK
     Route: 048
     Dates: start: 20080701, end: 20090801
  18. PROMETHAZINE [Concomitant]
  19. ACIPHEX [Concomitant]
  20. METOCLOPRAM [Concomitant]

REACTIONS (8)
  - CHOLECYSTITIS CHRONIC [None]
  - GAIT DISTURBANCE [None]
  - DYSPNOEA [None]
  - CHOLECYSTECTOMY [None]
  - DIARRHOEA [None]
  - BILIARY DYSKINESIA [None]
  - ABDOMINAL PAIN UPPER [None]
  - MUSCULOSKELETAL CHEST PAIN [None]
